FAERS Safety Report 4648951-7 (Version None)
Quarter: 2005Q2

REPORT INFORMATION
  Report Type: 
  Country: None (occurrence: None)
  Receive Date: 20050427
  Receipt Date: 20050411
  Transmission Date: 20051028
  Serious: Yes (Hospitalization)
  Sender: FDA-Public Use
  Company Number: US_0504115327

PATIENT
  Age: 65 Year
  Sex: Female

DRUGS (4)
  1. FORTEO [Suspect]
     Dates: start: 20041001
  2. ATENOLOL [Concomitant]
  3. EPOGEN [Concomitant]
  4. SOTALOL HCL [Concomitant]

REACTIONS (7)
  - ARRHYTHMIA [None]
  - ENERGY INCREASED [None]
  - HAEMATOCRIT INCREASED [None]
  - HAEMOGLOBIN INCREASED [None]
  - HOT FLUSH [None]
  - INTESTINAL OBSTRUCTION [None]
  - THERAPEUTIC RESPONSE UNEXPECTED [None]
